FAERS Safety Report 5071516-2 (Version None)
Quarter: 2006Q3

REPORT INFORMATION
  Report Type: 
  Country: None (occurrence: None)
  Receive Date: 20060804
  Receipt Date: 20060726
  Transmission Date: 20061208
  Serious: Yes (Death)
  Sender: FDA-Public Use
  Company Number: JP-SANOFI-SYNTHELABO-A01200606117

PATIENT
  Age: 60 Year
  Sex: Male

DRUGS (3)
  1. FLUOROURACIL [Concomitant]
     Route: 040
     Dates: start: 20060711, end: 20060712
  2. ISOVORIN [Concomitant]
     Route: 041
     Dates: start: 20060711, end: 20060712
  3. OXALIPLATIN [Suspect]
     Indication: LARGE INTESTINE CARCINOMA
     Route: 041
     Dates: start: 20060711, end: 20060711

REACTIONS (3)
  - DIARRHOEA [None]
  - NEUTROPENIA [None]
  - PNEUMONIA [None]
